FAERS Safety Report 15484198 (Version 7)
Quarter: 2020Q4

REPORT INFORMATION
  Report Type: Report from Study
  Country: GB (occurrence: GB)
  Receive Date: 20181010
  Receipt Date: 20201210
  Transmission Date: 20210113
  Serious: Yes (Hospitalization, Other)
  Sender: FDA-Public Use
  Company Number: GB-MYLANLABS-2018M1066442

PATIENT
  Age: 50 Year
  Sex: Female

DRUGS (25)
  1. PERTUZUMAB. [Suspect]
     Active Substance: PERTUZUMAB
     Indication: HER2 POSITIVE BREAST CANCER
     Dosage: 840 MG, TOTAL, LOADING DOSE
     Route: 042
     Dates: start: 20160620, end: 20160620
  2. LEVEMIR [Concomitant]
     Active Substance: INSULIN DETEMIR
     Dosage: 50 UNIT
     Route: 030
  3. TRASTUZUMAB. [Suspect]
     Active Substance: TRASTUZUMAB
     Indication: BREAST CANCER METASTATIC
     Dosage: 483 MG, Q3W, MAINTENANCE DOSE
     Route: 042
     Dates: start: 20160714
  4. ENOXAPARIN [Concomitant]
     Active Substance: ENOXAPARIN
     Dosage: UNK
     Route: 058
     Dates: start: 20171119, end: 20171127
  5. VENTOLIN [Concomitant]
     Active Substance: ALBUTEROL SULFATE
     Dosage: UNK
  6. METOCLOPRAMIDE. [Concomitant]
     Active Substance: METOCLOPRAMIDE
     Indication: VOMITING
     Dosage: UNK
     Route: 048
     Dates: start: 20160621, end: 20161026
  7. TRASTUZUMAB. [Suspect]
     Active Substance: TRASTUZUMAB
     Indication: HER2 POSITIVE BREAST CANCER
     Dosage: 651 MILLIGRAM, Q3W, LOADING DOSE
     Route: 042
     Dates: start: 20160620, end: 20160620
  8. TRASTUZUMAB. [Suspect]
     Active Substance: TRASTUZUMAB
     Dosage: 220 MILLIGRAM, Q3W
     Route: 042
     Dates: start: 20170112
  9. CAPECITABINE. [Suspect]
     Active Substance: CAPECITABINE
     Indication: BREAST CANCER METASTATIC
  10. METOCLOPRAMIDE. [Concomitant]
     Active Substance: METOCLOPRAMIDE
     Dosage: UNK
     Route: 042
     Dates: start: 20171021, end: 20171023
  11. TRASTUZUMAB. [Suspect]
     Active Substance: TRASTUZUMAB
     Dosage: 240 MILLIGRAM, Q3W
     Route: 042
     Dates: start: 20161123
  12. TRASTUZUMAB. [Suspect]
     Active Substance: TRASTUZUMAB
     Dosage: 200 MILLIGRAM, Q3W
     Route: 042
     Dates: start: 20170209
  13. DOCETAXEL. [Suspect]
     Active Substance: DOCETAXEL
     Indication: HER2 POSITIVE BREAST CANCER
     Dosage: 150 MG, Q3W/LAST DOSE ON 26/OCT/2016
     Route: 042
     Dates: start: 20160621, end: 20161026
  14. FUCIDIN (FUSIDIC ACID) [Concomitant]
     Active Substance: FUSIDIC ACID
     Dosage: 0.25 DAY
     Route: 061
     Dates: start: 20171123, end: 20171208
  15. PIRITON [Concomitant]
     Active Substance: CHLORPHENIRAMINE MALEATE
     Dosage: UNK
     Route: 042
     Dates: start: 20160914, end: 20161026
  16. CAPECITABINE. [Suspect]
     Active Substance: CAPECITABINE
     Indication: HER2 POSITIVE BREAST CANCER
     Dosage: 2000 MG, QD
     Route: 048
     Dates: start: 20160427, end: 20160525
  17. PERTUZUMAB. [Suspect]
     Active Substance: PERTUZUMAB
     Indication: BREAST CANCER METASTATIC
     Dosage: 420 MILLIGRAM, Q3W, MAINTENANCE DOSE
     Route: 042
     Dates: start: 20160714
  18. SEPTRIN [Concomitant]
     Active Substance: SULFAMETHOXAZOLE\TRIMETHOPRIM
     Indication: PRODUCT USED FOR UNKNOWN INDICATION
     Dosage: UNK
     Route: 048
     Dates: start: 201612, end: 20161218
  19. ENOXAPARIN [Concomitant]
     Active Substance: ENOXAPARIN
     Dosage: 150 MG, UNK
     Route: 058
     Dates: start: 20160901, end: 20160903
  20. DAPSONE. [Concomitant]
     Active Substance: DAPSONE
     Dosage: 100 MG, UNK
     Route: 048
     Dates: start: 20161218, end: 201711
  21. HYDROCORTISONE. [Concomitant]
     Active Substance: HYDROCORTISONE
     Dosage: UNK
     Route: 042
     Dates: start: 20160914, end: 20161026
  22. METOCLOPRAMIDE. [Concomitant]
     Active Substance: METOCLOPRAMIDE
     Indication: VOMITING
     Dosage: UNK
     Route: 042
     Dates: start: 20170916, end: 20170916
  23. LOPERAMIDE [Concomitant]
     Active Substance: LOPERAMIDE
     Dosage: 4 MILLIGRAM
     Route: 048
  24. NOVORAPID [Concomitant]
     Active Substance: INSULIN ASPART
     Indication: PRODUCT USED FOR UNKNOWN INDICATION
     Dosage: UNK
     Route: 030
  25. FILGRASTIM [Concomitant]
     Active Substance: FILGRASTIM
     Dosage: 300 MICROGRAM
     Route: 058
     Dates: start: 20131123, end: 20170209

REACTIONS (5)
  - Neutropenic sepsis [Recovered/Resolved]
  - Cough [Recovered/Resolved]
  - Productive cough [Recovered/Resolved]
  - Oropharyngeal pain [Recovered/Resolved]
  - Vomiting [Recovered/Resolved]

NARRATIVE: CASE EVENT DATE: 20160901
